FAERS Safety Report 5119089-X (Version None)
Quarter: 2006Q3

REPORT INFORMATION
  Report Type: 
  Country: None (occurrence: None)
  Receive Date: 20060927
  Receipt Date: 20060920
  Transmission Date: 20061208
  Serious: Yes (Other)
  Sender: FDA-Public Use
  Company Number: 2006113379

PATIENT
  Sex: Female
  Weight: 52.1637 kg

DRUGS (4)
  1. ROGAINE [Suspect]
     Indication: ALOPECIA
     Dosage: 1 ML TWICE A DAY, TOPICAL
     Route: 061
     Dates: start: 20040101
  2. DRUG (DRUG) [Concomitant]
  3. LEVOTHYROXINE SODIUM [Concomitant]
  4. TICLOPIDINE HCL [Concomitant]

REACTIONS (2)
  - ALOPECIA [None]
  - CEREBROVASCULAR ACCIDENT [None]
